FAERS Safety Report 19938679 (Version 3)
Quarter: 2022Q2

REPORT INFORMATION
  Report Type: Report from Study
  Country: IN (occurrence: IN)
  Receive Date: 20211011
  Receipt Date: 20220422
  Transmission Date: 20220720
  Serious: Yes (Hospitalization, Other)
  Sender: FDA-Public Use
  Company Number: IN-NOVARTISPH-NVSC2021IN229319

PATIENT
  Age: 58 Year
  Sex: Male
  Weight: 54 kg

DRUGS (15)
  1. SIMULECT [Suspect]
     Active Substance: BASILIXIMAB
     Indication: Renal transplant
     Dosage: 20 ML, (DAY 0)
     Route: 042
     Dates: start: 20210905
  2. SIMULECT [Suspect]
     Active Substance: BASILIXIMAB
     Dosage: 20 ML, (DAY 4)
     Route: 042
     Dates: start: 20210909
  3. LEVOFLOXACIN [Concomitant]
     Active Substance: LEVOFLOXACIN
     Indication: Product used for unknown indication
     Dosage: 1 DOSAGE FORM, QD
     Route: 065
  4. PREDNISOLONE [Concomitant]
     Active Substance: PREDNISOLONE
     Indication: Product used for unknown indication
     Dosage: 1 DOSAGE FORM (STRENGTH 20 MG), BID AT 6 PM
     Route: 065
  5. PREDNISOLONE [Concomitant]
     Active Substance: PREDNISOLONE
     Dosage: 1 DOSAGE FORM (STRENGTH 15 MG), BID AT 6 PM
     Route: 065
  6. PREDNISOLONE [Concomitant]
     Active Substance: PREDNISOLONE
     Dosage: 1 DOSAGE FORM (STRENGTH 10 MG), BID AT 6 PM
     Route: 065
  7. IMMUTIL S [Concomitant]
     Indication: Product used for unknown indication
     Dosage: 1 DOSAGE FORM, TID (6 AM, 2 PM, 10 PM)
     Route: 065
  8. TACROREN [Concomitant]
     Indication: Product used for unknown indication
     Dosage: 1 DOSAGE FORM, BID (10 AM, 10 PM)
     Route: 065
  9. SEPTRA DS [Concomitant]
     Active Substance: SULFAMETHOXAZOLE\TRIMETHOPRIM
     Indication: Product used for unknown indication
     Dosage: 1 DOSAGE FORM, ALTERNATE DAYS (2 PM)
     Route: 065
  10. LANUM C [Concomitant]
     Indication: Product used for unknown indication
     Dosage: 1 DOSAGE FORM, BID (2 HRS AFTER MEALS)
     Route: 065
  11. CILNIDIPINE [Concomitant]
     Active Substance: CILNIDIPINE
     Indication: Blood pressure increased
     Dosage: 1 DOSAGE FORM, BID (IF BP IS }140/90)
     Route: 065
  12. NPH INSULIN [Concomitant]
     Active Substance: INSULIN BEEF
     Indication: Product used for unknown indication
     Dosage: BID, (36-0-32)
     Route: 065
  13. INSULIN NOS [Concomitant]
     Active Substance: INSULIN NOS
     Indication: Product used for unknown indication
     Dosage: TID, (18-20-18)
     Route: 065
  14. CANDID [Concomitant]
     Indication: Product used for unknown indication
     Dosage: TID, (8 DROPS), (6 AM, 2 PM, 10 PM)
     Route: 065
  15. HEXIDINE MOUTHWASH [Concomitant]
     Indication: Product used for unknown indication
     Dosage: UNK UNK, TID
     Route: 065

REACTIONS (6)
  - Kidney transplant rejection [Not Recovered/Not Resolved]
  - Complications of transplanted kidney [Unknown]
  - Renal tubular injury [Unknown]
  - Malaise [Unknown]
  - Oliguria [Unknown]
  - Blood creatinine increased [Unknown]

NARRATIVE: CASE EVENT DATE: 20210918
